FAERS Safety Report 9113975 (Version 1)
Quarter: 2013Q1

REPORT INFORMATION
  Report Type: Spontaneous
  Country: US (occurrence: US)
  Receive Date: 20130208
  Receipt Date: 20130208
  Transmission Date: 20140127
  Serious: Yes (Death)
  Sender: FDA-Public Use
  Company Number: CHPA2013US002345

PATIENT
  Age: 35 Year
  Sex: Male

DRUGS (4)
  1. DIPHENHYDRAMINE [Suspect]
     Dosage: UNK, UNK
     Route: 048
  2. ACETAMINOPHEN W/HYDROCODONE [Suspect]
     Dosage: UNK, UNK
     Route: 048
  3. DIAZEPAM [Suspect]
     Dosage: UNK, UNK
     Route: 048
  4. DOXEPIN [Suspect]
     Dosage: UNK, UNK
     Route: 048

REACTIONS (1)
  - Drug abuse [Fatal]
